FAERS Safety Report 9697760 (Version 1)
Quarter: 2013Q4

REPORT INFORMATION
  Report Type: Spontaneous
  Country: FR (occurrence: None)
  Receive Date: 20131106
  Receipt Date: 20131106
  Transmission Date: 20140711
  Serious: Yes (Hospitalization)
  Sender: FDA-Public Use
  Company Number: 2013038671

PATIENT
  Age: 53 Year
  Sex: Female

DRUGS (5)
  1. PRIVIGEN (IMMUNE GLOBULIN INTRAVENOUS (HUMAN) 10% LIQUID) [Suspect]
     Indication: POLYMYOSITIS
     Route: 042
     Dates: start: 20131009, end: 20131011
  2. CORTANCYL (PREDNISONE) [Concomitant]
  3. CELLCEPT (MYCOPHENOLATE MOFETIL) [Concomitant]
  4. DIFFU K (POTASSIUM CHLORIDE) [Concomitant]
  5. CACIT VITAMINE D3 (LEKOVIT CA) [Concomitant]

REACTIONS (4)
  - Headache [None]
  - Pyrexia [None]
  - Vomiting [None]
  - Musculoskeletal stiffness [None]
